FAERS Safety Report 5721157-6 (Version None)
Quarter: 2008Q2

REPORT INFORMATION
  Report Type: 
  Country: None (occurrence: None)
  Receive Date: 20080429
  Receipt Date: 20080425
  Transmission Date: 20081010
  Serious: Yes (Hospitalization, Other)
  Sender: FDA-Public Use
  Company Number: B0488416A

PATIENT
  Age: 68 Year
  Sex: Male
  Weight: 76.1 kg

DRUGS (8)
  1. PAXIL [Suspect]
     Indication: MAJOR DEPRESSION
     Dosage: 10MG PER DAY
     Route: 048
     Dates: start: 20070907, end: 20070908
  2. TETRAMIDE [Suspect]
     Indication: DEPRESSION
     Dosage: 10MG PER DAY
     Route: 048
     Dates: start: 20070907, end: 20070908
  3. MICARDIS [Concomitant]
     Indication: HYPERTENSION
     Dosage: 20MG PER DAY
     Route: 048
     Dates: start: 20060721
  4. LENDORMIN [Concomitant]
     Indication: DEPRESSION
     Dosage: .25MG PER DAY
     Route: 048
     Dates: start: 20070907, end: 20070908
  5. MYSLEE [Concomitant]
     Indication: INSOMNIA
     Dosage: 5MG PER DAY
     Route: 048
     Dates: end: 20070908
  6. NOVORAPID [Concomitant]
     Dosage: 30IU PER DAY
     Route: 058
  7. UNKNOWN DRUG [Concomitant]
     Indication: DIABETES MELLITUS
     Dosage: 14IU PER DAY
     Route: 058
  8. INSULIN [Concomitant]

REACTIONS (10)
  - ALTERED STATE OF CONSCIOUSNESS [None]
  - BLOOD CREATINE PHOSPHOKINASE INCREASED [None]
  - FEELING HOT [None]
  - GAIT DISTURBANCE [None]
  - MUSCULAR WEAKNESS [None]
  - MYALGIA [None]
  - NIGHTMARE [None]
  - PYREXIA [None]
  - RHABDOMYOLYSIS [None]
  - SUBDURAL HAEMATOMA [None]
